FAERS Safety Report 16476305 (Version 1)
Quarter: 2019Q2

REPORT INFORMATION
  Report Type: Spontaneous
  Country: US (occurrence: US)
  Receive Date: 20190626
  Receipt Date: 20190626
  Transmission Date: 20190711
  Serious: No
  Sender: FDA-Public Use
  Company Number: US-BRISTOL-MYERS SQUIBB COMPANY-BMS-2019-053732

PATIENT
  Age: 22 Year
  Sex: Female

DRUGS (2)
  1. BARACLUDE [Suspect]
     Active Substance: ENTECAVIR
     Indication: CHRONIC HEPATITIS B
     Dosage: 0.5 MILLIGRAM, QD
     Route: 048
  2. ENTECAVIR. [Suspect]
     Active Substance: ENTECAVIR
     Indication: CHRONIC HEPATITIS B
     Dosage: 0.5 MILLIGRAM, QD
     Route: 048

REACTIONS (1)
  - Maternal exposure during pregnancy [Unknown]
